FAERS Safety Report 4284301-6 (Version None)
Quarter: 2004Q1

REPORT INFORMATION
  Report Type: 
  Country: None (occurrence: None)
  Receive Date: 20040203
  Receipt Date: 20030411
  Transmission Date: 20041129
  Serious: Yes (Hospitalization)
  Sender: FDA-Public Use
  Company Number: WAES 0304USA01384

PATIENT
  Age: 53 Year
  Sex: Female
  Weight: 109 kg

DRUGS (16)
  1. ATENOLOL [Concomitant]
     Indication: HYPERTENSION
     Dates: start: 20010522
  2. LANOXIN [Concomitant]
     Indication: CARDIAC FAILURE CONGESTIVE
  3. VASOTEC [Concomitant]
     Route: 048
  4. PREMARIN [Concomitant]
  5. LASIX [Concomitant]
     Indication: HYPERTENSION
  6. LASIX [Concomitant]
     Indication: OEDEMA PERIPHERAL
  7. GLIPIZIDE [Concomitant]
  8. LEVOTHYROXINE SODIUM [Concomitant]
  9. GLUCOPHAGE [Concomitant]
  10. NIFEDIPINE [Concomitant]
     Indication: HYPERTENSION
     Dates: end: 20010501
  11. VIOXX [Suspect]
     Indication: ARTHRITIS
     Route: 048
     Dates: start: 20000329, end: 20010601
  12. VIOXX [Suspect]
     Route: 048
     Dates: start: 20010101, end: 20011016
  13. VIOXX [Suspect]
     Indication: ARTHRALGIA
     Route: 048
     Dates: start: 20000329, end: 20010601
  14. VIOXX [Suspect]
     Route: 048
     Dates: start: 20010101, end: 20011016
  15. AVANDIA [Suspect]
     Dates: start: 20010501, end: 20010601
  16. ULTRAM [Concomitant]
     Indication: NEUROPATHY PERIPHERAL

REACTIONS (20)
  - ACUTE MYOCARDIAL INFARCTION [None]
  - CARDIAC FAILURE CONGESTIVE [None]
  - CHEST PAIN [None]
  - DIASTOLIC DYSFUNCTION [None]
  - DILATATION ATRIAL [None]
  - DYSPNOEA PAROXYSMAL NOCTURNAL [None]
  - EMOTIONAL DISTRESS [None]
  - HAEMATURIA [None]
  - INJURY [None]
  - JUGULAR VEIN DISTENSION [None]
  - MITRAL VALVE CALCIFICATION [None]
  - MITRAL VALVE INCOMPETENCE [None]
  - MYOCARDIAL INFARCTION [None]
  - PAIN IN EXTREMITY [None]
  - SLEEP APNOEA SYNDROME [None]
  - TRICUSPID VALVE INCOMPETENCE [None]
  - URINARY TRACT INFECTION [None]
  - VARICOSE VEIN [None]
  - VENTRICULAR HYPERTROPHY [None]
  - VENTRICULAR HYPOKINESIA [None]
